FAERS Safety Report 12394838 (Version 2)
Quarter: 2016Q2

REPORT INFORMATION
  Report Type: Spontaneous
  Country: AU (occurrence: AU)
  Receive Date: 20160523
  Receipt Date: 20160603
  Transmission Date: 20160815
  Serious: Yes (Other)
  Sender: FDA-Public Use
  Company Number: AU-SYMPLMED PHARMACEUTICALS-2016SYMPLMED000221

PATIENT

DRUGS (3)
  1. COVERSYL [Suspect]
     Active Substance: PERINDOPRIL
     Indication: HYPERTENSION
     Dosage: 5 MG, QD
     Route: 048
     Dates: start: 2005
  2. VAGIFEM [Concomitant]
     Active Substance: ESTRADIOL
     Indication: PRODUCT USED FOR UNKNOWN INDICATION
     Dosage: UNK, TWICE WEEKLY
     Route: 067
  3. PARIET [Concomitant]
     Active Substance: RABEPRAZOLE SODIUM
     Indication: REFLUX GASTRITIS
     Dosage: 20 MG, BID

REACTIONS (6)
  - Headache [Unknown]
  - Chest pain [Unknown]
  - Transient ischaemic attack [Recovered/Resolved]
  - Dyspnoea [Unknown]
  - Memory impairment [Unknown]
  - Palpitations [Unknown]

NARRATIVE: CASE EVENT DATE: 2014
